FAERS Safety Report 6700652-7 (Version None)
Quarter: 2010Q2

REPORT INFORMATION
  Report Type: 
  Country: None (occurrence: None)
  Receive Date: 20100426
  Receipt Date: 20100413
  Transmission Date: 20101027
  Serious: Yes (Other)
  Sender: FDA-Public Use
  Company Number: 564070

PATIENT
  Sex: Male

DRUGS (2)
  1. MIDAZOLAM HCL [Suspect]
  2. (RAPIFEN /00676302/) [Suspect]
     Dosage: 6 MG MILLIGRAM(S), SUBCUTANEOUS
     Route: 058

REACTIONS (3)
  - BREAKTHROUGH PAIN [None]
  - INCORRECT ROUTE OF DRUG ADMINISTRATION [None]
  - OFF LABEL USE [None]
